FAERS Safety Report 5419960-5 (Version None)
Quarter: 2007Q3

REPORT INFORMATION
  Report Type: 
  Country: None (occurrence: None)
  Receive Date: 20070820
  Receipt Date: 20070810
  Transmission Date: 20080115
  Serious: Yes (Other)
  Sender: FDA-Public Use
  Company Number: JP-PFIZER INC-2007057371

PATIENT
  Sex: Female
  Weight: 46 kg

DRUGS (4)
  1. LIPITOR [Suspect]
     Indication: HYPERCHOLESTEROLAEMIA
     Dosage: DAILY DOSE:5MG
     Route: 048
     Dates: start: 20070427, end: 20070527
  2. PERDIPINE-LA [Concomitant]
     Dosage: DAILY DOSE:80MG-FREQ:DAILY
     Route: 048
  3. LOWGAN [Concomitant]
     Dosage: DAILY DOSE:20MG-FREQ:DAILY
     Route: 048
  4. VALSARTAN [Concomitant]
     Indication: HYPERTENSION
     Dosage: DAILY DOSE:80MG-FREQ:DAILY
     Route: 048

REACTIONS (5)
  - ATROPHY OF TONGUE PAPILLAE [None]
  - GLOSSODYNIA [None]
  - HYPERTENSION [None]
  - TONGUE ATROPHY [None]
  - TONGUE DISORDER [None]
